FAERS Safety Report 7768949-X (Version None)
Quarter: 2011Q3

REPORT INFORMATION
  Report Type: 
  Country: None (occurrence: None)
  Receive Date: 20110922
  Receipt Date: 20110119
  Transmission Date: 20111222
  Serious: No
  Sender: FDA-Public Use
  Company Number: US-ASTRAZENECA-2011SE03531

PATIENT
  Age: 36 Year
  Sex: Male

DRUGS (4)
  1. SEROQUEL XR [Suspect]
     Route: 048
  2. SEROQUEL XR [Suspect]
     Indication: BIPOLAR DISORDER
     Dosage: SEROQUEL TREATEMENT
     Route: 048
  3. LAMICTAL [Concomitant]
  4. DEPAKOTE [Concomitant]

REACTIONS (4)
  - DRUG INEFFECTIVE [None]
  - CONFUSIONAL STATE [None]
  - FEELING ABNORMAL [None]
  - DRUG DOSE OMISSION [None]
